FAERS Safety Report 5914198-7 (Version None)
Quarter: 2008Q4

REPORT INFORMATION
  Report Type: 
  Country: None (occurrence: None)
  Receive Date: 20081009
  Receipt Date: 20081001
  Transmission Date: 20090506
  Serious: Yes (Hospitalization)
  Sender: FDA-Public Use
  Company Number: CH-PFIZER INC-2008082078

PATIENT
  Age: 54 Year
  Sex: Female
  Weight: 83 kg

DRUGS (8)
  1. XANAX [Suspect]
     Dosage: DAILY DOSE:1MG
     Route: 048
     Dates: start: 20080714
  2. TRITTICO [Suspect]
     Route: 048
     Dates: start: 20080710
  3. SEROQUEL [Suspect]
     Route: 048
     Dates: start: 20080721
  4. CIPRALEX [Concomitant]
     Route: 048
     Dates: start: 20080703
  5. ATENOLOL [Concomitant]
     Route: 048
     Dates: end: 20080717
  6. TENORMIN [Concomitant]
     Route: 048
     Dates: start: 20080718
  7. RISPERDAL [Concomitant]
     Route: 048
     Dates: start: 20080703, end: 20080723
  8. AKINETON [Concomitant]
     Route: 048
     Dates: start: 20080719

REACTIONS (1)
  - THROMBOSIS [None]
